FAERS Safety Report 8179799-7 (Version None)
Quarter: 2012Q1

REPORT INFORMATION
  Report Type: 
  Country: None (occurrence: None)
  Receive Date: 20120302
  Receipt Date: 20120217
  Transmission Date: 20120608
  Serious: Yes (Disabling)
  Sender: FDA-Public Use
  Company Number: IE-AMGEN-IRLSP2012006092

PATIENT
  Age: 45 Year
  Sex: Male

DRUGS (11)
  1. DICLOFENAC SODIUM [Concomitant]
     Dosage: UNK
  2. PREDNISOLONE [Concomitant]
     Dosage: 10 MG, 1X/DAY
  3. ATORVASTATIN [Concomitant]
     Dosage: UNK
  4. NEXIUM [Concomitant]
     Dosage: 40 MG, 1X/DAY
     Route: 048
  5. LEVOTHYROXINE SODIUM [Concomitant]
     Dosage: 225 UG, 1X/DAY
  6. CALCIUM CARBONATE [Concomitant]
     Dosage: UNK
  7. PLAQUENIL [Concomitant]
     Dosage: 200 MG, 1X/DAY
  8. ENBREL [Suspect]
     Indication: RHEUMATOID ARTHRITIS
     Dosage: INJECTION
  9. DURAGESIC-100 [Concomitant]
     Dosage: UNK
  10. IMURAN [Concomitant]
     Dosage: 50 MG, 1X/DAY
     Route: 048
  11. SULFASALAZINE [Concomitant]
     Dosage: 1500 MG, 2X/DAY
     Route: 048

REACTIONS (6)
  - HYPERHIDROSIS [None]
  - FATIGUE [None]
  - LIBIDO DECREASED [None]
  - TREMOR [None]
  - BLOOD TESTOSTERONE DECREASED [None]
  - ERECTILE DYSFUNCTION [None]
